FAERS Safety Report 9888142 (Version 2)
Quarter: 2014Q1

REPORT INFORMATION
  Report Type: Spontaneous
  Country: US (occurrence: US)
  Receive Date: 20140211
  Receipt Date: 20140304
  Transmission Date: 20141002
  Serious: No
  Sender: FDA-Public Use
  Company Number: US-PFIZER INC-2014037298

PATIENT
  Age: 72 Year
  Sex: Female
  Weight: 48.53 kg

DRUGS (3)
  1. LYRICA [Suspect]
     Indication: PAIN
     Dosage: 50 MG, 3X/DAY
     Route: 048
  2. TRAZODONE [Concomitant]
     Dosage: 100 MG, 1X/DAY
  3. NEURONTIN [Concomitant]
     Dosage: 600 MG, 3X/DAY
     Route: 048

REACTIONS (1)
  - Dry mouth [Unknown]
